FAERS Safety Report 10762425 (Version 3)
Quarter: 2015Q1

REPORT INFORMATION
  Report Type: Report from Study
  Country: US (occurrence: US)
  Receive Date: 20150204
  Receipt Date: 20150220
  Transmission Date: 20150721
  Serious: Yes (Hospitalization)
  Sender: FDA-Public Use
  Company Number: US-ABBVIE-15K-163-1341804-00

PATIENT
  Age: 66 Year
  Sex: Female

DRUGS (1)
  1. HUMIRA [Suspect]
     Active Substance: ADALIMUMAB
     Indication: RHEUMATOID ARTHRITIS
     Route: 058
     Dates: start: 201407, end: 20141228

REACTIONS (5)
  - Abdominal pain [Recovering/Resolving]
  - Post procedural complication [Recovered/Resolved]
  - Vomiting [Recovering/Resolving]
  - Gallbladder disorder [Recovered/Resolved]
  - Nausea [Recovering/Resolving]

NARRATIVE: CASE EVENT DATE: 201411
